FAERS Safety Report 5574599-6 (Version None)
Quarter: 2007Q4

REPORT INFORMATION
  Report Type: 
  Country: None (occurrence: None)
  Receive Date: 20071130
  Receipt Date: 20070925
  Transmission Date: 20080405
  Serious: Yes (Other)
  Sender: FDA-Public Use
  Company Number: PHEH2007US12885

PATIENT
  Age: 45 Year
  Sex: Female
  Weight: 52.6 kg

DRUGS (3)
  1. TEKTURNA [Suspect]
     Indication: HYPERTENSION
     Dosage: 150 MG, QD, ORAL
     Route: 048
     Dates: start: 20070921, end: 20070922
  2. HYDROCHLOROTHIAZIDE [Concomitant]
  3. LEXAPRO [Concomitant]

REACTIONS (5)
  - LIP SWELLING [None]
  - PHARYNGEAL OEDEMA [None]
  - SWELLING FACE [None]
  - SWOLLEN TONGUE [None]
  - TOOTH EXTRACTION [None]
